FAERS Safety Report 6574758-X (Version None)
Quarter: 2010Q1

REPORT INFORMATION
  Report Type: 
  Country: None (occurrence: None)
  Receive Date: 20100209
  Receipt Date: 20100127
  Transmission Date: 20100710
  Serious: Yes (Other)
  Sender: FDA-Public Use
  Company Number: PHHY2010CA04989

PATIENT

DRUGS (2)
  1. ALISKIREN ALI+ [Suspect]
     Dosage: 300 MG, EVERY DAY
  2. BETA BLOCKING AGENTS [Concomitant]

REACTIONS (3)
  - BLOOD CHOLESTEROL INCREASED [None]
  - BLOOD SODIUM DECREASED [None]
  - MICROALBUMINURIA [None]
